FAERS Safety Report 11419174 (Version 4)
Quarter: 2016Q2

REPORT INFORMATION
  Report Type: Report from Study
  Country: ES (occurrence: ES)
  Receive Date: 20150826
  Receipt Date: 20160504
  Transmission Date: 20160815
  Serious: Yes (Hospitalization)
  Sender: FDA-Public Use
  Company Number: PHHO2015ES013505

PATIENT
  Age: 54 Year
  Sex: Male
  Weight: 77 kg

DRUGS (7)
  1. PAROXETINE. [Concomitant]
     Active Substance: PAROXETINE
     Indication: DEPRESSION
     Dosage: 20 MG, QD
     Route: 048
     Dates: start: 20130819
  2. ATORVASTATINE [Concomitant]
     Active Substance: ATORVASTATIN
     Indication: DYSLIPIDAEMIA
     Dosage: 40 MG, QD
     Route: 065
     Dates: start: 20130820
  3. AMN107 [Suspect]
     Active Substance: NILOTINIB
     Indication: CHRONIC MYELOID LEUKAEMIA
     Dosage: 300 MG, BID (300 MG/12H)
     Route: 048
     Dates: start: 20130729, end: 20150731
  4. DIAZEPAM. [Concomitant]
     Active Substance: DIAZEPAM
     Indication: PRODUCT USED FOR UNKNOWN INDICATION
     Dosage: UNK
     Route: 065
     Dates: start: 20140331, end: 20150820
  5. BISOPROLOL [Concomitant]
     Active Substance: BISOPROLOL
     Indication: MYOCARDIAL INFARCTION
     Dosage: 10 MG, QD
     Route: 065
     Dates: start: 20130825
  6. OMEPRAZOL [Concomitant]
     Active Substance: OMEPRAZOLE
     Indication: PROPHYLAXIS AGAINST GASTROINTESTINAL ULCER
     Dosage: 20 MG, QD
     Route: 048
     Dates: start: 20130819
  7. SIMVASTATINA [Concomitant]
     Active Substance: SIMVASTATIN
     Indication: PRODUCT USED FOR UNKNOWN INDICATION
     Dosage: UNK
     Route: 065
     Dates: start: 20141111, end: 20150820

REACTIONS (1)
  - Myocardial infarction [Recovered/Resolved]

NARRATIVE: CASE EVENT DATE: 20150819
